FAERS Safety Report 19392224 (Version 2)
Quarter: 2021Q3

REPORT INFORMATION
  Report Type: Spontaneous
  Country: US (occurrence: US)
  Receive Date: 20210609
  Receipt Date: 20210721
  Transmission Date: 20211014
  Serious: No
  Sender: FDA-Public Use
  Company Number: US-SA-2021SA191035

PATIENT
  Age: 30 Year
  Sex: Male

DRUGS (3)
  1. TRIAMCINOLONE ACETONIDE. [Concomitant]
     Active Substance: TRIAMCINOLONE ACETONIDE
  2. DUPIXENT [Suspect]
     Active Substance: DUPILUMAB
     Indication: DERMATITIS ATOPIC
     Dosage: 600 MG, 1X
     Route: 058
     Dates: start: 20210125, end: 20210125
  3. DUPIXENT [Suspect]
     Active Substance: DUPILUMAB
     Indication: ILLNESS
     Dosage: 300 MG, QOW
     Route: 058
     Dates: start: 2021

REACTIONS (8)
  - Adverse drug reaction [Unknown]
  - Product use in unapproved indication [Unknown]
  - Furuncle [Unknown]
  - Road traffic accident [Recovering/Resolving]
  - Rash [Recovering/Resolving]
  - Visual impairment [Unknown]
  - Eye swelling [Unknown]
  - Eyelid pain [Unknown]

NARRATIVE: CASE EVENT DATE: 202101
